FAERS Safety Report 6490074-9 (Version None)
Quarter: 2009Q4

REPORT INFORMATION
  Report Type: 
  Country: None (occurrence: None)
  Receive Date: 20091211
  Receipt Date: 20081222
  Transmission Date: 20100525
  Serious: No
  Sender: FDA-Public Use
  Company Number: A0760182A

PATIENT
  Age: 59 Year
  Sex: Female

DRUGS (7)
  1. FLONASE [Suspect]
     Dosage: 1SPR TWICE PER DAY
     Route: 045
     Dates: start: 20080801
  2. FLONASE [Suspect]
  3. ELAVIL [Concomitant]
  4. INDERAL LA [Concomitant]
  5. ZANTAC [Concomitant]
  6. ACIPHEX [Concomitant]
  7. SYNTHROID [Concomitant]

REACTIONS (1)
  - NASAL ODOUR [None]
